FAERS Safety Report 20179347 (Version 1)
Quarter: 2021Q4

REPORT INFORMATION
  Report Type: Spontaneous
  Country: JP (occurrence: JP)
  Receive Date: 20211214
  Receipt Date: 20211214
  Transmission Date: 20220303
  Serious: Yes (Other)
  Sender: FDA-Public Use
  Company Number: JP-NBI-J202123423BIPI

PATIENT

DRUGS (1)
  1. PRAMIPEXOLE [Suspect]
     Active Substance: PRAMIPEXOLE
     Indication: Restless legs syndrome
     Route: 048

REACTIONS (2)
  - Neuroleptic malignant syndrome [Unknown]
  - Blood creatine phosphokinase increased [Unknown]
